FAERS Safety Report 7266945-2 (Version None)
Quarter: 2011Q1

REPORT INFORMATION
  Report Type: 
  Country: None (occurrence: None)
  Receive Date: 20110121
  Receipt Date: 20110112
  Transmission Date: 20110831
  Serious: Yes (Hospitalization)
  Sender: FDA-Public Use
  Company Number: 2010US000105

PATIENT
  Age: 71 Year
  Sex: Male

DRUGS (3)
  1. MULTI-VITAMIN [Concomitant]
  2. ENTEREG [Suspect]
     Indication: POSTOPERATIVE ILEUS
     Dosage: 12 MG; PO
     Route: 048
     Dates: start: 20090601, end: 20090604
  3. ASPIRIN [Concomitant]

REACTIONS (2)
  - PNEUMONIA [None]
  - COLLAPSE OF LUNG [None]
